FAERS Safety Report 21038034 (Version 1)
Quarter: 2022Q3

REPORT INFORMATION
  Report Type: Spontaneous
  Country: US (occurrence: None)
  Receive Date: 20220704
  Receipt Date: 20220704
  Transmission Date: 20221026
  Serious: No
  Sender: FDA-Public Use
  Company Number: US-ALVOGEN-2021-ALVOGEN-117403

PATIENT
  Sex: Female

DRUGS (1)
  1. AMPHETAMINE\DEXTROAMPHETAMINE [Suspect]
     Active Substance: AMPHETAMINE\DEXTROAMPHETAMINE
     Indication: Product used for unknown indication

REACTIONS (5)
  - Vision blurred [Unknown]
  - Disorientation [Unknown]
  - Abdominal pain upper [Unknown]
  - Dyspnoea [Unknown]
  - Drug ineffective [Unknown]
